FAERS Safety Report 22043416 (Version 6)
Quarter: 2023Q4

REPORT INFORMATION
  Report Type: Report from Study
  Country: JP (occurrence: JP)
  Receive Date: 20230228
  Receipt Date: 20231019
  Transmission Date: 20240109
  Serious: Yes (Death, Life-Threatening, Hospitalization)
  Sender: FDA-Public Use
  Company Number: JP-teijin-202300347_XE_P_1

PATIENT
  Age: 73 Year
  Sex: Male

DRUGS (17)
  1. XEOMIN [Suspect]
     Active Substance: INCOBOTULINUMTOXINA
     Indication: Muscle spasticity
     Route: 030
     Dates: start: 20230123, end: 20230123
  2. XEOMIN [Suspect]
     Active Substance: INCOBOTULINUMTOXINA
     Route: 030
     Dates: start: 20220808, end: 20220808
  3. XEOMIN [Suspect]
     Active Substance: INCOBOTULINUMTOXINA
     Route: 030
     Dates: start: 20221017, end: 20221017
  4. ATORVASTATIN CALCIUM\EZETIMIBE [Concomitant]
     Active Substance: ATORVASTATIN CALCIUM\EZETIMIBE
     Indication: Dyslipidaemia
     Dosage: 1 TABLET
     Route: 048
  5. GLUTAMINE\SODIUM GUALENATE [Concomitant]
     Active Substance: GLUTAMINE\SODIUM GUALENATE
     Indication: Chronic gastritis
     Dosage: 1.5 G
     Route: 048
  6. ASPIRIN [Concomitant]
     Active Substance: ASPIRIN
     Indication: Cerebral infarction
     Dosage: 100 MG
     Route: 048
  7. ZOLPIDEM TARTRATE [Concomitant]
     Active Substance: ZOLPIDEM TARTRATE
     Indication: Sleep disorder
     Dosage: 5 MG
     Route: 048
  8. BISOPROLOL FUMARATE [Concomitant]
     Active Substance: BISOPROLOL FUMARATE
     Indication: Hypertension
     Dosage: 2.5 MG
     Route: 048
  9. TRAMCET [Concomitant]
     Active Substance: ACETAMINOPHEN\TRAMADOL
     Indication: Pain
     Dosage: 1 TABLET
     Route: 048
  10. NAUZELIN [Concomitant]
     Active Substance: DOMPERIDONE
     Indication: Nausea
     Dosage: 10 MG
     Route: 048
  11. ADALAT CC [Concomitant]
     Active Substance: NIFEDIPINE
     Indication: Hypertension
     Dosage: 10 MG
     Route: 048
     Dates: end: 20220912
  12. NIFEDIPINE [Concomitant]
     Active Substance: NIFEDIPINE
     Indication: Hypertension
     Dosage: 40 MG
     Route: 048
     Dates: end: 20221120
  13. NIFEDIPINE [Concomitant]
     Active Substance: NIFEDIPINE
     Dosage: 20 MG
     Route: 048
     Dates: start: 20221121
  14. VOLTAREN [Concomitant]
     Active Substance: DICLOFENAC SODIUM
     Indication: Back pain
     Dosage: 30 MG
     Route: 003
  15. ENTRESTO [Concomitant]
     Active Substance: SACUBITRIL\VALSARTAN
     Indication: Hypertension
     Dosage: 200 MG
     Route: 048
     Dates: start: 20221121, end: 20221211
  16. ENTRESTO [Concomitant]
     Active Substance: SACUBITRIL\VALSARTAN
     Dosage: 300 MG
     Route: 048
     Dates: start: 20221212, end: 20230122
  17. ENTRESTO [Concomitant]
     Active Substance: SACUBITRIL\VALSARTAN
     Dosage: 200 MG
     Route: 048
     Dates: start: 20230123

REACTIONS (3)
  - Acute kidney injury [Fatal]
  - Cholecystitis [Unknown]
  - Oedema peripheral [Recovered/Resolved]

NARRATIVE: CASE EVENT DATE: 20221121
